FAERS Safety Report 19081100 (Version 1)
Quarter: 2021Q1

REPORT INFORMATION
  Report Type: Spontaneous
  Country: US (occurrence: US)
  Receive Date: 20210331
  Receipt Date: 20210331
  Transmission Date: 20210420
  Serious: No
  Sender: FDA-Public Use
  Company Number: US-CARDINAL HEALTH 414-CAHLYMPH-AE-20-49

PATIENT
  Sex: Female

DRUGS (2)
  1. LYMPHOSEEK [Suspect]
     Active Substance: TECHNETIUM TC-99M TILMANOCEPT
     Indication: LYMPHATIC MAPPING
     Route: 023
     Dates: start: 20201014, end: 20201014
  2. BLUE DYE [Concomitant]
     Dates: start: 20201014, end: 20201014

REACTIONS (1)
  - Drug ineffective [Recovered/Resolved]

NARRATIVE: CASE EVENT DATE: 20201014
